FAERS Safety Report 5684687-1 (Version None)
Quarter: 2008Q1

REPORT INFORMATION
  Report Type: 
  Country: None (occurrence: None)
  Receive Date: 20080328
  Receipt Date: 20070619
  Transmission Date: 20080703
  Serious: Yes (Life-Threatening)
  Sender: FDA-Public Use
  Company Number: US-BRISTOL-MYERS SQUIBB COMPANY-13818620

PATIENT
  Sex: Female

DRUGS (3)
  1. ERBITUX [Suspect]
     Route: 042
     Dates: start: 20070615
  2. AMITRIPTYLINE HCL [Concomitant]
  3. COLACE [Concomitant]

REACTIONS (1)
  - ANAPHYLACTIC REACTION [None]
